FAERS Safety Report 5170741-X (Version None)
Quarter: 2006Q4

REPORT INFORMATION
  Report Type: 
  Country: None (occurrence: None)
  Receive Date: 20060919
  Receipt Date: 20060706
  Transmission Date: 20070319
  Serious: No
  Sender: FDA-Public Use
  Company Number: 2006US000855

PATIENT
  Age: 84 Year
  Sex: Female

DRUGS (4)
  1. VESICARE [Suspect]
     Indication: URINARY INCONTINENCE
     Dosage: 5 MG, ORAL
     Route: 048
     Dates: start: 20060407, end: 20060409
  2. TOPROL-XL [Concomitant]
  3. DIOVAN [Concomitant]
  4. NEXIUM [Concomitant]

REACTIONS (1)
  - TREMOR [None]
